FAERS Safety Report 17463368 (Version 1)
Quarter: 2020Q1

REPORT INFORMATION
  Report Type: Spontaneous
  Country: US (occurrence: US)
  Receive Date: 20200226
  Receipt Date: 20200226
  Transmission Date: 20200409
  Serious: No
  Sender: FDA-Public Use
  Company Number: US-009507513-2002USA009263

PATIENT
  Age: 17 Year
  Sex: Female

DRUGS (1)
  1. NEXPLANON [Suspect]
     Active Substance: ETONOGESTREL
     Indication: CONTRACEPTION
     Dosage: 1 PER CYCLE
     Route: 059
     Dates: start: 20180626

REACTIONS (2)
  - Vaginal haemorrhage [Unknown]
  - Menstruation irregular [Unknown]

NARRATIVE: CASE EVENT DATE: 20191211
